FAERS Safety Report 18570478 (Version 1)
Quarter: 2020Q4

REPORT INFORMATION
  Report Type: Report from Study
  Country: AU (occurrence: AU)
  Receive Date: 20201202
  Receipt Date: 20201202
  Transmission Date: 20210114
  Serious: Yes (Other)
  Sender: FDA-Public Use
  Company Number: AU-GW PHARMA-201803AUGW0179

PATIENT

DRUGS (7)
  1. EPILIM [Suspect]
     Active Substance: VALPROATE SODIUM
     Indication: TUBEROUS SCLEROSIS COMPLEX
     Dosage: 200 MILLIGRAM, BID
     Route: 048
     Dates: start: 20161223, end: 20180312
  2. EPIDIOLEX [Suspect]
     Active Substance: CANNABIDIOL
     Indication: TUBEROUS SCLEROSIS COMPLEX
     Dosage: 31 MG/KG, 511.5 MILLIGRAM, QD
     Route: 048
     Dates: start: 20180222, end: 20180308
  3. TEGRETOL [Concomitant]
     Active Substance: CARBAMAZEPINE
     Indication: TUBEROUS SCLEROSIS COMPLEX
     Dosage: 120 MILLIGRAM, BID
     Route: 048
     Dates: start: 20170619
  4. EPIDIOLEX [Suspect]
     Active Substance: CANNABIDIOL
     Dosage: 18 MG/KG, 300 MILLIGRAM, QD
     Route: 048
     Dates: start: 20180315, end: 20180319
  5. EPIDIOLEX [Suspect]
     Active Substance: CANNABIDIOL
     Dosage: 32.7 MG/KG, 540 MILLIGRAM, QD
     Route: 048
     Dates: start: 20180308, end: 20180312
  6. EPILIM [Suspect]
     Active Substance: VALPROATE SODIUM
     Dosage: 160 MILLIGRAM, BID
     Route: 048
     Dates: start: 20180312, end: 20180315
  7. EPIDIOLEX [Suspect]
     Active Substance: CANNABIDIOL
     Dosage: 27.9 MG/KG, 460 MILLIGRAM, QD
     Route: 048
     Dates: start: 20180312, end: 20180315

REACTIONS (4)
  - Thrombocytopenia [Recovered/Resolved]
  - Neutropenia [Recovered/Resolved]
  - Transaminases increased [Recovered/Resolved]
  - Toxicity to various agents [Recovered/Resolved]

NARRATIVE: CASE EVENT DATE: 20180313
